FAERS Safety Report 9445331 (Version 2)
Quarter: 2014Q2

REPORT INFORMATION
  Report Type: Spontaneous
  Country: GB (occurrence: GB)
  Receive Date: 20130807
  Receipt Date: 20140516
  Transmission Date: 20141212
  Serious: Yes (Death)
  Sender: FDA-Public Use
  Company Number: GB-WATSON-2013-13794

PATIENT
  Age: 32 Week
  Sex: Female
  Weight: 2.24 kg

DRUGS (13)
  1. CITALOPRAM [Suspect]
     Indication: ANXIETY
     Dosage: 20 MG, UNKNOWN
     Route: 064
  2. CITALOPRAM [Suspect]
     Indication: DEPRESSION
  3. SALBUTAMOL [Concomitant]
     Indication: PRODUCT USED FOR UNKNOWN INDICATION
     Dosage: 4 MG, UNKNOWN
     Route: 064
  4. DEXAMETHASONE [Concomitant]
     Indication: PRODUCT USED FOR UNKNOWN INDICATION
     Dosage: 2 MG, DAILY
     Route: 064
  5. QVAR CFC FREE INHALER [Concomitant]
     Indication: PRODUCT USED FOR UNKNOWN INDICATION
     Dosage: 100 MCG
     Route: 064
  6. QVAR CFC FREE INHALER [Concomitant]
     Dosage: 100 MCG
     Route: 064
     Dates: start: 20100426
  7. VENTOLIN [Concomitant]
     Indication: PRODUCT USED FOR UNKNOWN INDICATION
     Dosage: 100 MCG
     Route: 064
  8. VENTOLIN [Concomitant]
     Dosage: 100 MCG
     Route: 064
     Dates: start: 20100426
  9. FERROUS FUMARATE [Concomitant]
     Indication: PRODUCT USED FOR UNKNOWN INDICATION
     Dosage: 210 MG, UNKNOWN
     Route: 064
  10. FERROUS FUMARATE [Concomitant]
     Dosage: 210 MG, UNKNOWN
     Route: 064
  11. FERROUS FUMARATE [Concomitant]
     Dosage: 210 MG, UNKNOWN
     Route: 064
     Dates: start: 20100607
  12. PEPTAC PEPPERMINT [Concomitant]
     Indication: PRODUCT USED FOR UNKNOWN INDICATION
     Dosage: UNK
     Route: 062
  13. PARACETAMOL [Concomitant]
     Indication: PRODUCT USED FOR UNKNOWN INDICATION
     Dosage: UNKNOWN
     Route: 064

REACTIONS (5)
  - Heart disease congenital [Fatal]
  - Foetal exposure during pregnancy [Fatal]
  - Heart block congenital [Fatal]
  - Heart disease congenital [Fatal]
  - Congenital heart valve disorder [Fatal]
